FAERS Safety Report 8981392 (Version 1)
Quarter: 2012Q4

REPORT INFORMATION
  Report Type: 
  Country: US (occurrence: US)
  Receive Date: 20121221
  Receipt Date: 20121221
  Transmission Date: 20130627
  Serious: No
  Sender: FDA-Public Use
  Company Number: US-PFIZER INC-2012321543

PATIENT
  Age: 36 Year
  Sex: Male

DRUGS (1)
  1. VFEND [Suspect]
     Indication: ACUTE MYELOID LEUKAEMIA WITHOUT MENTION OF REMISSION
     Dosage: 200 mg, 2x/day

REACTIONS (2)
  - Drug dose omission [Unknown]
  - Malaise [Unknown]
